FAERS Safety Report 4748181-4 (Version None)
Quarter: 2005Q3

REPORT INFORMATION
  Report Type: 
  Country: None (occurrence: None)
  Receive Date: 20050818
  Receipt Date: 20050809
  Transmission Date: 20060218
  Serious: Yes (Hospitalization, Other)
  Sender: FDA-Public Use
  Company Number: US-JNJFOC-20050803328

PATIENT
  Sex: Female
  Weight: 56.7 kg

DRUGS (5)
  1. DURAGESIC-100 [Suspect]
     Route: 062
  2. DURAGESIC-100 [Suspect]
     Route: 062
  3. DURAGESIC-100 [Suspect]
     Route: 062
  4. LORTAB [Concomitant]
     Route: 048
  5. LORTAB [Concomitant]
     Indication: PAIN
     Dosage: 7.5/500 MG/ 4 IN 24 HOURS AS NEEDED; DOSE INCREASED TO 10/500 MG IN MAY OR JUN-2005
     Route: 048

REACTIONS (10)
  - AMNESIA [None]
  - ANOREXIA [None]
  - DEHYDRATION [None]
  - ENTERITIS INFECTIOUS [None]
  - INSOMNIA [None]
  - NIGHT SWEATS [None]
  - SOMNOLENCE [None]
  - THERAPEUTIC RESPONSE DECREASED [None]
  - WEIGHT DECREASED [None]
  - WRONG TECHNIQUE IN DRUG USAGE PROCESS [None]
